FAERS Safety Report 12454274 (Version 4)
Quarter: 2016Q4

REPORT INFORMATION
  Report Type: Spontaneous
  Country: US (occurrence: US)
  Receive Date: 20160610
  Receipt Date: 20161111
  Transmission Date: 20170207
  Serious: No
  Sender: FDA-Public Use
  Company Number: US-009507513-1605USA010988

PATIENT
  Age: 35 Year
  Sex: Female

DRUGS (2)
  1. ETONOGESTREL IMPLANT- UNKNOWN [Suspect]
     Active Substance: ETONOGESTREL
     Dosage: AN IMPLANT
     Route: 059
     Dates: end: 20130426
  2. IMPLANON [Suspect]
     Active Substance: ETONOGESTREL
     Dosage: A ROD FOR 3 YEARS
     Route: 059
     Dates: start: 20130426

REACTIONS (5)
  - Menstruation irregular [Recovered/Resolved]
  - Complication associated with device [Not Recovered/Not Resolved]
  - Product use issue [Unknown]
  - Weight increased [Unknown]
  - Complication associated with device [Not Recovered/Not Resolved]

NARRATIVE: CASE EVENT DATE: 2016
